FAERS Safety Report 8547314-1 (Version None)
Quarter: 2012Q3

REPORT INFORMATION
  Report Type: 
  Country: None (occurrence: None)
  Receive Date: 20120727
  Receipt Date: 20120319
  Transmission Date: 20120928
  Serious: No
  Sender: FDA-Public Use
  Company Number: US-ASTRAZENECA-2012SE18538

PATIENT
  Age: 30 Year
  Sex: Male

DRUGS (3)
  1. LITHIUM CARBONATE [Concomitant]
  2. SEROQUEL XR [Suspect]
     Indication: BIPOLAR DISORDER
     Route: 048
  3. DEPAKOTE [Concomitant]

REACTIONS (3)
  - ANXIETY [None]
  - DRUG DOSE OMISSION [None]
  - AGITATION [None]
